FAERS Safety Report 7029485-1 (Version None)
Quarter: 2010Q4

REPORT INFORMATION
  Report Type: 
  Country: None (occurrence: None)
  Receive Date: 20101005
  Receipt Date: 20100928
  Transmission Date: 20110411
  Serious: Yes (Hospitalization, Other)
  Sender: FDA-Public Use
  Company Number: US-ABBOTT-10P-163-0674129-00

PATIENT
  Sex: Female
  Weight: 66.738 kg

DRUGS (8)
  1. DEPAKOTE [Suspect]
     Indication: EPILEPSY
     Dates: start: 19820101, end: 20100830
  2. DEPAKOTE [Suspect]
     Indication: SHOCK
     Dates: start: 20100831
  3. OMEPRAZOLE [Concomitant]
     Indication: GASTROOESOPHAGEAL REFLUX DISEASE
  4. SYNTHROID [Concomitant]
     Indication: HYPOTHYROIDISM
  5. VALIUM [Concomitant]
     Indication: MYOCLONUS
  6. AMBIEN [Concomitant]
     Indication: INSOMNIA
  7. KEPPRA [Concomitant]
     Indication: CONVULSION
     Dates: start: 20100830, end: 20100904
  8. KEPPRA [Concomitant]
     Dates: start: 20100904

REACTIONS (13)
  - ALOPECIA [None]
  - ASTHENIA [None]
  - COUGH [None]
  - DIARRHOEA [None]
  - DYSPNOEA [None]
  - FLUSHING [None]
  - INSOMNIA [None]
  - LUNG NEOPLASM MALIGNANT [None]
  - MALAISE [None]
  - MANIA [None]
  - MEMORY IMPAIRMENT [None]
  - SOMNOLENCE [None]
  - TREMOR [None]
